FAERS Safety Report 6372439-9 (Version None)
Quarter: 2009Q3

REPORT INFORMATION
  Report Type: 
  Country: None (occurrence: None)
  Receive Date: 20090924
  Receipt Date: 20080808
  Transmission Date: 20100115
  Serious: No
  Sender: FDA-Public Use
  Company Number: US-ASTRAZENECA-2008UW16233

PATIENT
  Age: 16 Year
  Sex: Female
  Weight: 64.9 kg

DRUGS (5)
  1. SEROQUEL [Suspect]
     Indication: INSOMNIA
     Route: 048
     Dates: start: 20070101
  2. ADDERALL XR 10 [Suspect]
     Indication: ATTENTION DEFICIT/HYPERACTIVITY DISORDER
     Dosage: ONE TIME DAILY
     Route: 048
     Dates: start: 20070101, end: 20070601
  3. CYMBALTA [Suspect]
     Indication: INSOMNIA
     Dates: start: 20070101, end: 20080601
  4. CYMBALTA [Suspect]
     Indication: DEPRESSION
     Dates: start: 20070101, end: 20080601
  5. SPRINTEC [Concomitant]

REACTIONS (1)
  - TIC [None]
